FAERS Safety Report 5602475-9 (Version None)
Quarter: 2008Q1

REPORT INFORMATION
  Report Type: 
  Country: None (occurrence: None)
  Receive Date: 20080125
  Receipt Date: 20080115
  Transmission Date: 20080703
  Serious: Yes (Other)
  Sender: FDA-Public Use
  Company Number: US-ASTRAZENECA-2006UW11990

PATIENT
  Sex: Female
  Weight: 113.6 kg

DRUGS (17)
  1. SEROQUEL [Suspect]
     Indication: DEPRESSION
     Route: 048
     Dates: start: 19970101, end: 20000101
  2. SEROQUEL [Suspect]
     Indication: INSOMNIA
     Route: 048
     Dates: start: 19970101, end: 20000101
  3. SEROQUEL [Suspect]
     Indication: BIPOLAR DISORDER
     Route: 048
     Dates: start: 19970101, end: 20000101
  4. SEROQUEL [Suspect]
     Route: 048
     Dates: start: 20020101, end: 20030101
  5. SEROQUEL [Suspect]
     Route: 048
     Dates: start: 20020101, end: 20030101
  6. SEROQUEL [Suspect]
     Route: 048
     Dates: start: 20020101, end: 20030101
  7. SEROQUEL [Suspect]
     Route: 048
     Dates: start: 20040101, end: 20060201
  8. SEROQUEL [Suspect]
     Route: 048
     Dates: start: 20040101, end: 20060201
  9. SEROQUEL [Suspect]
     Route: 048
     Dates: start: 20040101, end: 20060201
  10. ZYPREXA [Suspect]
  11. DEPAKOTE [Concomitant]
  12. ABILIFY [Concomitant]
     Dates: start: 20060101
  13. CLOZARIL [Concomitant]
     Dates: start: 19970101
  14. HALDOL [Concomitant]
     Dates: start: 19970101, end: 20000101
  15. RISPERDAL [Concomitant]
     Dates: start: 19970101, end: 20050101
  16. STELAZINE [Concomitant]
     Dates: start: 19990101
  17. FENTERMINE [Concomitant]
     Indication: WEIGHT DECREASED

REACTIONS (9)
  - CELLULITIS [None]
  - CONVULSION [None]
  - DIABETES MELLITUS [None]
  - DIABETIC COMA [None]
  - DIABETIC KETOACIDOSIS [None]
  - MIGRAINE [None]
  - NEPHROLITHIASIS [None]
  - NEUROPATHY PERIPHERAL [None]
  - SLEEP APNOEA SYNDROME [None]
